FAERS Safety Report 26010058 (Version 3)
Quarter: 2025Q4

REPORT INFORMATION
  Report Type: Report from Study
  Country: AR (occurrence: AR)
  Receive Date: 20251107
  Receipt Date: 20251119
  Transmission Date: 20260117
  Serious: Yes (Other)
  Sender: ALEXION PHARMACEUTICALS
  Company Number: AR-ASTRAZENECA-202511LAT001826AR

PATIENT
  Age: 60 Year
  Sex: Female
  Weight: 73 kg

DRUGS (2)
  1. FULVESTRANT [Suspect]
     Active Substance: FULVESTRANT
     Indication: Breast cancer
     Dosage: 300 MG, 2X/DAY, ORAL
     Dates: start: 20250107, end: 20251001
  2. FULVESTRANT [Suspect]
     Active Substance: FULVESTRANT

REACTIONS (1)
  - Drug-induced liver injury [Not Recovered/Not Resolved]

NARRATIVE: CASE EVENT DATE: 20251018
